FAERS Safety Report 23625899 (Version 1)
Quarter: 2024Q1

REPORT INFORMATION
  Report Type: Spontaneous
  Country: BE (occurrence: BE)
  Receive Date: 20240313
  Receipt Date: 20240313
  Transmission Date: 20240410
  Serious: Yes (Death, Other)
  Sender: FDA-Public Use
  Company Number: BE-AMGEN-BELSP2024049298

PATIENT

DRUGS (1)
  1. CARFILZOMIB [Suspect]
     Active Substance: CARFILZOMIB
     Indication: Plasma cell myeloma refractory
     Dosage: UNK
     Route: 065

REACTIONS (14)
  - Death [Fatal]
  - Plasma cell myeloma refractory [Unknown]
  - General physical health deterioration [Unknown]
  - Cognitive disorder [Unknown]
  - Fatigue [Unknown]
  - Pain [Unknown]
  - Vomiting [Unknown]
  - Nausea [Unknown]
  - Dyspnoea [Unknown]
  - Insomnia [Unknown]
  - Decreased appetite [Unknown]
  - Constipation [Unknown]
  - Diarrhoea [Unknown]
  - Adverse reaction [Unknown]
